FAERS Safety Report 5537460-9 (Version None)
Quarter: 2007Q4

REPORT INFORMATION
  Report Type: 
  Country: None (occurrence: None)
  Receive Date: 20071207
  Receipt Date: 20071205
  Transmission Date: 20080405
  Serious: Yes (Other)
  Sender: FDA-Public Use
  Company Number: BR-BRISTOL-MYERS SQUIBB COMPANY-14004709

PATIENT
  Age: 22 Year
  Sex: Female

DRUGS (2)
  1. CEFEPIME [Suspect]
     Indication: SEPSIS
  2. CEFEPIME [Suspect]
     Indication: PYELONEPHRITIS ACUTE

REACTIONS (4)
  - BLOOD LACTIC ACID INCREASED [None]
  - HYPOTENSION [None]
  - NON-CARDIOGENIC PULMONARY OEDEMA [None]
  - PNEUMONIA [None]
